FAERS Safety Report 6600396-6 (Version None)
Quarter: 2010Q1

REPORT INFORMATION
  Report Type: 
  Country: None (occurrence: None)
  Receive Date: 20100217
  Receipt Date: 20100129
  Transmission Date: 20100710
  Serious: Yes (Other)
  Sender: FDA-Public Use
  Company Number: 1000009096

PATIENT
  Age: 56 Year
  Sex: Female
  Weight: 63.5 kg

DRUGS (6)
  1. LEXAPRO [Suspect]
  2. MEMANTINE HYDROCHLORIDE [Suspect]
     Indication: DEMENTIA ALZHEIMER'S TYPE
     Dosage: 20 MG (20 MG, 1 IN 1 D),ORAL; 10 MG (10 MG,L IN 1 D),ORAL
     Route: 048
  3. MEMANTINE HYDROCHLORIDE [Suspect]
     Indication: DEMENTIA ALZHEIMER'S TYPE
     Dosage: 7.5 MG (7.5 MG, 1 IN 1 D),ORAL
     Route: 048
     Dates: start: 20071106
  4. ELTROXIN [Concomitant]
  5. ANTICONVULSANTS NOS [Concomitant]
  6. OSTEOPHOS D3 [Concomitant]

REACTIONS (1)
  - CONVULSION [None]
